FAERS Safety Report 10085825 (Version 2)
Quarter: 2014Q2

REPORT INFORMATION
  Report Type: Spontaneous
  Country: US (occurrence: US)
  Receive Date: 20140418
  Receipt Date: 20140602
  Transmission Date: 20141212
  Serious: No
  Sender: FDA-Public Use
  Company Number: US-PFIZER INC-2014107394

PATIENT
  Age: 51 Year
  Sex: Male
  Weight: 105.22 kg

DRUGS (2)
  1. REVATIO [Suspect]
     Indication: PULMONARY HYPERTENSION
     Dosage: UNK
     Dates: end: 2014
  2. FELODIPINE [Concomitant]
     Dosage: 10 MG, DAILY

REACTIONS (1)
  - Headache [Unknown]
